FAERS Safety Report 10661408 (Version 4)
Quarter: 2015Q2

REPORT INFORMATION
  Report Type: Report from Study
  Country: BG (occurrence: BG)
  Receive Date: 20141218
  Receipt Date: 20150408
  Transmission Date: 20150821
  Serious: Yes (Death, Hospitalization)
  Sender: FDA-Public Use
  Company Number: BG-ACTELION-A-CH2012-63645

PATIENT
  Age: 30 Year
  Sex: Male
  Weight: 75 kg

DRUGS (8)
  1. DILTIAZEM [Concomitant]
     Active Substance: DILTIAZEM
     Indication: PULMONARY ARTERIAL HYPERTENSION
     Dosage: UNK
     Route: 048
     Dates: start: 20080526, end: 20141118
  2. SPIRONOLACTONE. [Concomitant]
     Active Substance: SPIRONOLACTONE
     Indication: PULMONARY ARTERIAL HYPERTENSION
     Dosage: UNK
     Route: 048
     Dates: start: 20111201, end: 20141123
  3. SILDENAFIL. [Concomitant]
     Active Substance: SILDENAFIL
     Indication: PULMONARY ARTERIAL HYPERTENSION
     Dosage: 60 UNK, UNK
     Route: 048
     Dates: start: 20100804, end: 20141123
  4. FUROSEMIDE. [Concomitant]
     Active Substance: FUROSEMIDE
     Indication: RIGHT VENTRICULAR FAILURE
     Dosage: UNK
     Route: 048
     Dates: start: 20140826, end: 20141123
  5. KALIUM CHLORATUM [Concomitant]
     Active Substance: POTASSIUM CHLORIDE
     Dosage: UNK
     Dates: start: 20090520
  6. MACITENTAN [Suspect]
     Active Substance: MACITENTAN
     Indication: PULMONARY ARTERIAL HYPERTENSION
     Dosage: 10 MG, QD
     Route: 048
     Dates: start: 20120207, end: 20141123
  7. TRIFAS [Concomitant]
     Dosage: UNK
     Route: 048
     Dates: start: 20140826, end: 20141123
  8. ACENOCOUMAROL [Concomitant]
     Active Substance: ACENOCOUMAROL
     Indication: PULMONARY ARTERIAL HYPERTENSION
     Dosage: UNK
     Route: 048
     Dates: start: 20060713, end: 20141118

REACTIONS (26)
  - Asthenia [Fatal]
  - Right ventricular hypertrophy [Fatal]
  - Blood bilirubin increased [Fatal]
  - International normalised ratio increased [Fatal]
  - Pulmonary oedema [Fatal]
  - Right ventricular failure [Fatal]
  - Viral infection [Unknown]
  - Hypotension [Fatal]
  - Atrial flutter [Unknown]
  - Multi-organ failure [Fatal]
  - Vomiting [Fatal]
  - Rales [Fatal]
  - Concomitant disease aggravated [Fatal]
  - Cyanosis [Fatal]
  - Cardiac failure [Fatal]
  - Dyspnoea [Fatal]
  - Prothrombin time prolonged [Fatal]
  - Hepatomegaly [Fatal]
  - Blood bilirubin unconjugated increased [Fatal]
  - Tachycardia [Fatal]
  - Bundle branch block right [Fatal]
  - Dizziness [Fatal]
  - Orthopnoea [Fatal]
  - Oedema peripheral [Fatal]
  - Respiratory failure [Fatal]
  - Heart sounds abnormal [Fatal]

NARRATIVE: CASE EVENT DATE: 20120323
